FAERS Safety Report 24971082 (Version 1)
Quarter: 2025Q1

REPORT INFORMATION
  Report Type: Spontaneous
  Country: US (occurrence: US)
  Receive Date: 20250214
  Receipt Date: 20250214
  Transmission Date: 20250409
  Serious: Yes (Other)
  Sender: NOVO NORDISK
  Company Number: US-NOVOPROD-1367570

PATIENT
  Sex: Female

DRUGS (1)
  1. OZEMPIC [Suspect]
     Active Substance: SEMAGLUTIDE
     Indication: Type 2 diabetes mellitus
     Route: 058

REACTIONS (9)
  - Deafness unilateral [Unknown]
  - Blood glucose increased [Unknown]
  - Renal disorder [Unknown]
  - Peripheral swelling [Unknown]
  - Generalised oedema [Unknown]
  - Cardiac disorder [Unknown]
  - Oesophageal disorder [Unknown]
  - Vomiting [Unknown]
  - Nausea [Unknown]

NARRATIVE: CASE EVENT DATE: 20241001
